FAERS Safety Report 10682484 (Version 1)
Quarter: 2014Q4

REPORT INFORMATION
  Report Type: Spontaneous
  Country: FR (occurrence: None)
  Receive Date: 20141224
  Receipt Date: 20141224
  Transmission Date: 20150529
  Serious: Yes (Death, Hospitalization, Other)
  Sender: FDA-Public Use
  Company Number: 2014COV00190

PATIENT
  Age: 85 Year
  Sex: Male

DRUGS (9)
  1. VISMODEGIB [Suspect]
     Active Substance: VISMODEGIB
     Indication: BASAL CELL CARCINOMA
     Dosage: 1X/DAY
     Route: 048
     Dates: start: 20130211
  2. DAFALGAN (PARACETAMOL) [Concomitant]
  3. FUROSEMIDE. [Concomitant]
     Active Substance: FUROSEMIDE
  4. PREVISCAN (FLUINDIONE) [Concomitant]
     Active Substance: FLUINDIONE
  5. DIGOXIN (DIGOXIN) UNKNOWN [Suspect]
     Active Substance: DIGOXIN
     Indication: CARDIAC FAILURE
     Route: 048
     Dates: end: 20130304
  6. SPIRONOLACTONE. [Concomitant]
     Active Substance: SPIRONOLACTONE
  7. CARDENSIEL (BISOPROLOL FUMARATE) [Concomitant]
  8. RAMIPRIL. [Concomitant]
     Active Substance: RAMIPRIL
  9. KAYEXALATE [Concomitant]
     Active Substance: SODIUM POLYSTYRENE SULFONATE

REACTIONS (13)
  - White blood cell count increased [None]
  - Neutrophil count increased [None]
  - General physical health deterioration [None]
  - Orthostatic hypotension [None]
  - Dizziness [None]
  - Bronchitis [None]
  - Blood creatine increased [None]
  - C-reactive protein increased [None]
  - Fall [None]
  - Pain [None]
  - Body temperature decreased [None]
  - Head injury [None]
  - Acarodermatitis [None]

NARRATIVE: CASE EVENT DATE: 20130304
